FAERS Safety Report 19005524 (Version 1)
Quarter: 2021Q1

REPORT INFORMATION
  Report Type: Spontaneous
  Country: IT (occurrence: IT)
  Receive Date: 20210313
  Receipt Date: 20210313
  Transmission Date: 20210420
  Serious: Yes (Life-Threatening)
  Sender: FDA-Public Use
  Company Number: NVSC2021IT058475

PATIENT
  Age: 14 Year
  Sex: Female
  Weight: 42 kg

DRUGS (3)
  1. ALPRAZOLAM. [Suspect]
     Active Substance: ALPRAZOLAM
     Indication: SUICIDE ATTEMPT
     Dosage: 18ML
     Route: 048
     Dates: start: 20210304, end: 20210304
  2. AMISULPRIDE [Suspect]
     Active Substance: AMISULPRIDE
     Indication: SUICIDE ATTEMPT
     Dosage: 450 MG
     Route: 048
     Dates: start: 20210304, end: 20210304
  3. FLUOXETINE [Suspect]
     Active Substance: FLUOXETINE HYDROCHLORIDE
     Indication: SUICIDE ATTEMPT
     Dosage: 80 MG
     Route: 048
     Dates: start: 20210304, end: 20210304

REACTIONS (6)
  - Hyporeflexia [Recovering/Resolving]
  - Vomiting [Recovering/Resolving]
  - Mydriasis [Recovering/Resolving]
  - Sopor [Recovering/Resolving]
  - Electrocardiogram QT prolonged [Recovering/Resolving]
  - Cough [Recovering/Resolving]

NARRATIVE: CASE EVENT DATE: 20210304
